FAERS Safety Report 14333225 (Version 4)
Quarter: 2018Q1

REPORT INFORMATION
  Report Type: Spontaneous
  Country: TR (occurrence: TR)
  Receive Date: 20171228
  Receipt Date: 20180209
  Transmission Date: 20180509
  Serious: Yes (Life-Threatening, Hospitalization, Other)
  Sender: FDA-Public Use
  Company Number: TR-SA-2017SA264009

PATIENT
  Age: 61 Year
  Sex: Male

DRUGS (2)
  1. DOCETAXEL. [Suspect]
     Active Substance: DOCETAXEL
     Indication: NASOPHARYNGEAL CANCER
     Route: 042
  2. FLUOROURACIL. [Suspect]
     Active Substance: FLUOROURACIL
     Indication: NASOPHARYNGEAL CANCER
     Dosage: TOTAL DOSAGE OF 7000 MG
     Route: 042

REACTIONS (10)
  - Vomiting [Recovered/Resolved]
  - Neutropenia [Recovered/Resolved]
  - Pneumatosis intestinalis [Recovered/Resolved]
  - Abdominal rebound tenderness [Recovered/Resolved]
  - Abdominal pain lower [Recovered/Resolved]
  - Abdominal pain [Recovered/Resolved]
  - Cell-mediated cytotoxicity [Unknown]
  - White blood cell count decreased [Recovered/Resolved]
  - Portal venous gas [Recovered/Resolved]
  - Off label use [Unknown]
